FAERS Safety Report 24296711 (Version 1)
Quarter: 2024Q3

REPORT INFORMATION
  Report Type: Report from Study
  Country: US (occurrence: US)
  Receive Date: 20240909
  Receipt Date: 20240909
  Transmission Date: 20241016
  Serious: Yes (Hospitalization)
  Sender: ABBVIE
  Company Number: US-ABBVIE-5908348

PATIENT
  Sex: Female

DRUGS (4)
  1. SKYRIZI [Suspect]
     Active Substance: RISANKIZUMAB-RZAA
     Indication: Crohn^s disease
     Dosage: WEEK 12?FORM STRENGTH: 360MG/2.4M
     Route: 058
     Dates: start: 20230915
  2. SKYRIZI [Suspect]
     Active Substance: RISANKIZUMAB-RZAA
     Indication: Crohn^s disease
     Dosage: WEEK 0?FORM STRENGTH: 600MG/10ML
     Route: 042
     Dates: start: 202306, end: 202306
  3. SKYRIZI [Suspect]
     Active Substance: RISANKIZUMAB-RZAA
     Indication: Crohn^s disease
     Dosage: WEEK 4?FORM STRENGTH: 600MG/10ML?FIRST ADMIN DATE: 2023?LAST ADMIN DATE: 2023
     Route: 042
  4. SKYRIZI [Suspect]
     Active Substance: RISANKIZUMAB-RZAA
     Indication: Crohn^s disease
     Dosage: WEEK 8?FORM STRENGTH: 600MG/10ML?FIRST ADMIN DATE: 2023?LAST ADMIN DATE: 2023
     Route: 042

REACTIONS (1)
  - Nephrolithiasis [Unknown]
